FAERS Safety Report 9088832 (Version 1)
Quarter: 2013Q1

REPORT INFORMATION
  Report Type: Report from Study
  Country: US (occurrence: US)
  Receive Date: 20130218
  Receipt Date: 20130218
  Transmission Date: 20140127
  Serious: No
  Sender: FDA-Public Use
  Company Number: US-ABBOTT-12P-163-0953931-00

PATIENT
  Sex: Female
  Weight: 81.72 kg

DRUGS (3)
  1. SIMCOR 1000MG/20MG [Suspect]
     Indication: BLOOD CHOLESTEROL ABNORMAL
     Dosage: 100MG/20MG DOSE AT BEDTIME
     Dates: start: 201205, end: 20120705
  2. ASA [Concomitant]
     Indication: PRODUCT USED FOR UNKNOWN INDICATION
     Dosage: PRIOR TO SIMCOR
  3. UNKNOWN MEDICATIONS [Concomitant]
     Indication: PRODUCT USED FOR UNKNOWN INDICATION

REACTIONS (1)
  - Rash [Not Recovered/Not Resolved]
